FAERS Safety Report 8849995 (Version 4)
Quarter: 2013Q3

REPORT INFORMATION
  Report Type: Report from Study
  Country: US (occurrence: US)
  Receive Date: 20121019
  Receipt Date: 20130729
  Transmission Date: 20140515
  Serious: Yes (Other)
  Sender: FDA-Public Use
  Company Number: US-ROCHE-1143656

PATIENT
  Sex: 0

DRUGS (4)
  1. PEG-INTERFERON ALFA 2A [Suspect]
     Indication: HEPATITIS C
     Route: 058
  2. RIBAVIRIN [Suspect]
     Indication: HEPATITIS C
     Route: 048
  3. CYCLOSPORINE [Suspect]
     Indication: PROPHYLAXIS AGAINST TRANSPLANT REJECTION
     Route: 065
  4. TELAPREVIR [Suspect]
     Indication: HEPATITIS C
     Route: 048

REACTIONS (12)
  - Transplant rejection [Unknown]
  - Sinusitis [Unknown]
  - Cellulitis [Unknown]
  - Pneumonia [Unknown]
  - Rash [Unknown]
  - Ascites [Unknown]
  - Trigeminal neuralgia [Unknown]
  - Leukopenia [Unknown]
  - Anaemia [Unknown]
  - Thrombocytopenia [Unknown]
  - Blood creatinine increased [Unknown]
  - Hepatic encephalopathy [Unknown]
